FAERS Safety Report 19230251 (Version 2)
Quarter: 2021Q2

REPORT INFORMATION
  Report Type: Spontaneous
  Country: US (occurrence: US)
  Receive Date: 20210507
  Receipt Date: 20210615
  Transmission Date: 20210717
  Serious: No
  Sender: FDA-Public Use
  Company Number: US-ELI_LILLY_AND_COMPANY-US202105002456

PATIENT
  Age: 36 Year
  Sex: Female

DRUGS (2)
  1. TALTZ [Suspect]
     Active Substance: IXEKIZUMAB
     Indication: PSORIASIS
     Dosage: 160 MG, SINGLE (LOADING DOSE)
     Route: 058
     Dates: start: 20210217
  2. TALTZ [Suspect]
     Active Substance: IXEKIZUMAB
     Indication: ANKYLOSING SPONDYLITIS
     Dosage: 80 MG, OTHER (EVERY FOUR WEEKS)
     Route: 058

REACTIONS (4)
  - Tooth infection [Unknown]
  - SAPHO syndrome [Unknown]
  - Rash pustular [Unknown]
  - Alopecia [Unknown]

NARRATIVE: CASE EVENT DATE: 20210222
